FAERS Safety Report 8329572-1 (Version None)
Quarter: 2012Q2

REPORT INFORMATION
  Report Type: 
  Country: None (occurrence: None)
  Receive Date: 20120502
  Receipt Date: 20120420
  Transmission Date: 20120825
  Serious: Yes (Other)
  Sender: FDA-Public Use
  Company Number: FR-BRISTOL-MYERS SQUIBB COMPANY-16544009

PATIENT

DRUGS (1)
  1. SPRYCEL [Suspect]

REACTIONS (2)
  - RENAL TUBULAR DISORDER [None]
  - ACIDOSIS [None]
